FAERS Safety Report 20514734 (Version 2)
Quarter: 2022Q1

REPORT INFORMATION
  Report Type: Spontaneous
  Country: GR (occurrence: GR)
  Receive Date: 20220224
  Receipt Date: 20220314
  Transmission Date: 20220424
  Serious: Yes (Other)
  Sender: FDA-Public Use
  Company Number: GR-TEVA-2022-GR-2009256

PATIENT
  Age: 27 Year
  Sex: Female

DRUGS (9)
  1. ETOPOSIDE [Suspect]
     Active Substance: ETOPOSIDE
     Indication: Primary mediastinal large B-cell lymphoma
     Dosage: ON DAYS 1-4, AS PART OF R-DA-EPOCH REGIMEN
     Route: 050
  2. ETOPOSIDE [Suspect]
     Active Substance: ETOPOSIDE
     Dosage: ON DAYS 1-4, AS PART OF R-DA-EPOCH REGIMEN
     Route: 050
  3. DOXORUBICIN [Suspect]
     Active Substance: DOXORUBICIN
     Indication: Primary mediastinal large B-cell lymphoma
     Dosage: ON DAYS 1-4, AS PART OF R-DA-EPOCH REGIMEN
     Route: 050
  4. DOXORUBICIN [Suspect]
     Active Substance: DOXORUBICIN
     Dosage: ON DAYS 1-4, AS PART OF R-DA-EPOCH REGIMEN
     Route: 050
  5. VINCRISTINE [Suspect]
     Active Substance: VINCRISTINE
     Indication: Primary mediastinal large B-cell lymphoma
     Dosage: ON DAYS 1-4, AS PART OF R-DA-EPOCH REGIMEN
     Route: 065
  6. RITUXIMAB [Suspect]
     Active Substance: RITUXIMAB
     Indication: Primary mediastinal large B-cell lymphoma
     Dosage: RECEIVED 6 CYCLES AS PART OF R-DA-EPOCH REGIMEN
     Route: 065
  7. PREDNISONE [Suspect]
     Active Substance: PREDNISONE
     Indication: Primary mediastinal large B-cell lymphoma
     Dosage: ON DAYS 1-5, AS PART OF R-DA-EPOCH REGIMEN
     Route: 065
  8. CYCLOPHOSPHAMIDE [Suspect]
     Active Substance: CYCLOPHOSPHAMIDE
     Indication: Primary mediastinal large B-cell lymphoma
     Dosage: ON DAY 5, AS PART OF R-DA-EPOCH REGIMEN
     Route: 065
  9. CYCLOPHOSPHAMIDE [Suspect]
     Active Substance: CYCLOPHOSPHAMIDE
     Dosage: ON DAY 5, AS PART OF R-DA-EPOCH REGIMEN
     Route: 065

REACTIONS (2)
  - Acute myeloid leukaemia [Recovered/Resolved]
  - Myelodysplastic syndrome [Recovered/Resolved]
